FAERS Safety Report 7106336-8 (Version None)
Quarter: 2010Q4

REPORT INFORMATION
  Report Type: 
  Country: None (occurrence: None)
  Receive Date: 20101116
  Receipt Date: 20101104
  Transmission Date: 20110411
  Serious: No
  Sender: FDA-Public Use
  Company Number: SG-ROCHE-740820

PATIENT
  Age: 32 Year
  Sex: Female

DRUGS (1)
  1. ISOTRETINOIN [Suspect]
     Route: 048
     Dates: start: 20100201, end: 20101022

REACTIONS (2)
  - NO ADVERSE EVENT [None]
  - PREGNANCY [None]
